FAERS Safety Report 4997490-2 (Version None)
Quarter: 2006Q1

REPORT INFORMATION
  Report Type: 
  Country: None (occurrence: None)
  Receive Date: 20060315
  Receipt Date: 20051207
  Transmission Date: 20060701
  Serious: Yes (Other)
  Sender: FDA-Public Use
  Company Number: 428232

PATIENT
  Age: 90 Year
  Sex: Female

DRUGS (1)
  1. BONIVA [Suspect]
     Indication: DRUG USE FOR UNKNOWN INDICATION
     Dosage: 75 MG E 1 PER MONTH ORAL
     Route: 048
     Dates: start: 20050615

REACTIONS (3)
  - BURNING SENSATION [None]
  - DIZZINESS [None]
  - DRUG ADMINISTRATION ERROR [None]
